FAERS Safety Report 23804659 (Version 3)
Quarter: 2024Q3

REPORT INFORMATION
  Report Type: Spontaneous
  Country: GR (occurrence: GR)
  Receive Date: 20240501
  Receipt Date: 20240917
  Transmission Date: 20241016
  Serious: Yes (Hospitalization, Other)
  Sender: INCYTE
  Company Number: GR-002147023-NVSC2024GR089362

PATIENT

DRUGS (7)
  1. RUXOLITINIB [Suspect]
     Active Substance: RUXOLITINIB
     Indication: Myelofibrosis
     Dosage: UNK
     Route: 065
  2. RUXOLITINIB [Suspect]
     Active Substance: RUXOLITINIB
     Dosage: 20 MG, BID
     Route: 065
     Dates: start: 20240112
  3. RUXOLITINIB [Suspect]
     Active Substance: RUXOLITINIB
     Dosage: 15 MG, BID
     Route: 048
     Dates: start: 20240126, end: 20240423
  4. ELIQUIS [Concomitant]
     Active Substance: APIXABAN
     Indication: Pulmonary embolism
     Dosage: 5 MG (1X2 IN THE MORNING AND NIGHT)
     Route: 065
  5. OLMESARTAN MEDOXOMIL [Concomitant]
     Active Substance: OLMESARTAN MEDOXOMIL
     Indication: Blood pressure increased
     Dosage: 40 MG (1X1 IN THE AFTERNOON)
     Route: 065
  6. AMLOPEN [Concomitant]
     Indication: Blood pressure increased
     Dosage: 5 MG (1X1 IN THE MORNING)
     Route: 065
  7. PREGABALIN [Concomitant]
     Active Substance: PREGABALIN
     Indication: Neuralgia
     Dosage: 75 MG (1 X 2 IN THE MORNING AND EVENING OFF)
     Route: 065
     Dates: start: 20240306

REACTIONS (5)
  - Spinal fracture [Recovering/Resolving]
  - Vertebral column mass [Recovering/Resolving]
  - Transaminases increased [Unknown]
  - Intervertebral discitis [Recovering/Resolving]
  - Tuberculosis [Recovering/Resolving]

NARRATIVE: CASE EVENT DATE: 20240306
